FAERS Safety Report 18007784 (Version 1)
Quarter: 2020Q3

REPORT INFORMATION
  Report Type: Spontaneous
  Country: US (occurrence: US)
  Receive Date: 20200710
  Receipt Date: 20200710
  Transmission Date: 20201103
  Serious: Yes (Hospitalization)
  Sender: FDA-Public Use
  Company Number: US-MYLANLABS-2020M1063293

PATIENT
  Sex: Female
  Weight: 64.4 kg

DRUGS (1)
  1. EPINEPHRINE. [Suspect]
     Active Substance: EPINEPHRINE
     Indication: TACHYCARDIA
     Dosage: UNK

REACTIONS (1)
  - Drug effective for unapproved indication [Unknown]
